FAERS Safety Report 8903340 (Version 1)
Quarter: 2012Q4

REPORT INFORMATION
  Report Type: 
  Country: ES (occurrence: ES)
  Receive Date: 20121113
  Receipt Date: 20121113
  Transmission Date: 20130627
  Serious: Yes (Hospitalization, Other)
  Sender: FDA-Public Use
  Company Number: PHHY2012ES103984

PATIENT
  Age: 68 Year
  Sex: Male

DRUGS (6)
  1. SINTROM [Suspect]
     Indication: ATRIAL FIBRILLATION
     Dosage: 4 mg, UNK
     Route: 048
     Dates: start: 2009, end: 20120412
  2. AMOXICILLIN [Interacting]
     Indication: RESPIRATORY TRACT INFECTION
     Dosage: 1 g, TID
     Route: 048
     Dates: start: 20120323, end: 20120410
  3. ENALAPRIL [Concomitant]
     Indication: CARDIAC FAILURE CONGESTIVE
     Dosage: 40 mg, daily
     Route: 048
     Dates: start: 2009
  4. ZOLPIDEM [Concomitant]
     Indication: INSOMNIA
     Dosage: UNK UKN, UNK
     Route: 048
     Dates: start: 2009
  5. OMEPRAZOLE [Concomitant]
     Indication: PROPHYLAXIS
     Dosage: 20 mg, QD
     Route: 048
     Dates: start: 2011, end: 20120412
  6. ZOCOR [Concomitant]
     Indication: DYSLIPIDAEMIA
     Dosage: 20 mg, QD
     Route: 048
     Dates: start: 2009, end: 20120412

REACTIONS (5)
  - Cardiac failure acute [Recovered/Resolved]
  - Anaemia [Recovered/Resolved]
  - Hypocoagulable state [Recovered/Resolved]
  - International normalised ratio increased [Recovered/Resolved]
  - Drug interaction [Unknown]
